FAERS Safety Report 6394416-4 (Version None)
Quarter: 2009Q4

REPORT INFORMATION
  Report Type: 
  Country: None (occurrence: None)
  Receive Date: 20091006
  Receipt Date: 20090912
  Transmission Date: 20100525
  Serious: Yes (Death, Other)
  Sender: FDA-Public Use
  Company Number: OPER20090033

PATIENT
  Sex: Female
  Weight: 62.5964 kg

DRUGS (10)
  1. OPANA ER [Suspect]
     Indication: PAIN
     Dosage: TWICE DAILY, ORAL
     Route: 048
     Dates: start: 20080701
  2. OPANA ER [Suspect]
     Indication: PAIN
     Dosage: TWICE DAILY, ORAL
     Route: 048
     Dates: start: 20080701
  3. OPANA [Suspect]
     Indication: BREAKTHROUGH PAIN
     Dosage: TWICE DAILY, PRN, ORAL
     Route: 048
     Dates: start: 20080701
  4. COCAINE (COCAINE) [Suspect]
  5. THC (TETRAHYDROCANNABINOL) (TETRAHYDROCANNABINOL) [Concomitant]
  6. SOMA (CARISOPRODOL) (CARISOPRODOL) [Concomitant]
  7. LOTREL 5/20 (AMLODIPINE, BENAZEPRIL HYDROCHLORIDE) (AMLODIPINE, BENAZE [Concomitant]
  8. CYMABALTA [Concomitant]
  9. XANAX (ALPRAZOLAM) (ALPRAZOLAM) [Concomitant]
  10. PULMONARY MEDICATIONS (RESPIRATORY SYSTEM) [Concomitant]

REACTIONS (5)
  - ACCIDENTAL DEATH [None]
  - ARTERIOSCLEROSIS [None]
  - CARDIOMEGALY [None]
  - CHRONIC OBSTRUCTIVE PULMONARY DISEASE [None]
  - DRUG ABUSE [None]
